FAERS Safety Report 6253224-5 (Version None)
Quarter: 2009Q3

REPORT INFORMATION
  Report Type: 
  Country: None (occurrence: None)
  Receive Date: 20090701
  Receipt Date: 20090624
  Transmission Date: 20100115
  Serious: Yes (Other)
  Sender: FDA-Public Use
  Company Number: US-JNJFOC-20081106354

PATIENT
  Age: 47 Year
  Sex: Male

DRUGS (7)
  1. PREZISTA [Suspect]
     Indication: HIV INFECTION
     Route: 065
  2. ROSUVASTATIN CALCIUM [Interacting]
     Indication: DRUG USE FOR UNKNOWN INDICATION
     Route: 065
  3. GEMFIBROZIL [Suspect]
     Indication: BLOOD CHOLESTEROL
  4. RITONAVIR [Concomitant]
     Indication: HIV INFECTION
     Route: 048
  5. RALTEGRAVIR [Concomitant]
     Indication: HIV INFECTION
     Route: 048
  6. TRIZIVIR [Concomitant]
     Indication: HIV INFECTION
     Route: 048
  7. FISH OIL [Concomitant]
     Indication: BLOOD TRIGLYCERIDES

REACTIONS (2)
  - DRUG INTERACTION [None]
  - RHABDOMYOLYSIS [None]
